FAERS Safety Report 20165020 (Version 1)
Quarter: 2021Q4

REPORT INFORMATION
  Report Type: Spontaneous
  Country: US (occurrence: US)
  Receive Date: 20211209
  Receipt Date: 20211209
  Transmission Date: 20220304
  Serious: No
  Sender: FDA-Public Use
  Company Number: US-PFIZER INC-202101275620

PATIENT
  Age: 58 Year
  Sex: Female
  Weight: 73.469 kg

DRUGS (1)
  1. CELECOXIB [Suspect]
     Active Substance: CELECOXIB
     Dosage: UNK

REACTIONS (4)
  - Drug ineffective [Unknown]
  - Arthritis [Unknown]
  - Gait inability [Unknown]
  - Pain [Unknown]
